FAERS Safety Report 5887784-0 (Version None)
Quarter: 2008Q3

REPORT INFORMATION
  Report Type: 
  Country: None (occurrence: None)
  Receive Date: 20080917
  Receipt Date: 20080917
  Transmission Date: 20090109
  Serious: Yes (Life-Threatening)
  Sender: FDA-Public Use
  Company Number: None

PATIENT
  Age: 43 Year
  Sex: Male
  Weight: 75.7507 kg

DRUGS (1)
  1. DEPAKOTE [Suspect]
     Indication: CONVULSION
     Dosage: 3 TIMES DAILY
     Dates: start: 19970306, end: 20080916

REACTIONS (6)
  - ABDOMINAL PAIN UPPER [None]
  - CONDITION AGGRAVATED [None]
  - CONVULSION [None]
  - DIARRHOEA [None]
  - FAECES DISCOLOURED [None]
  - WEIGHT INCREASED [None]
